FAERS Safety Report 7622179-0 (Version None)
Quarter: 2011Q3

REPORT INFORMATION
  Report Type: 
  Country: None (occurrence: None)
  Receive Date: 20110720
  Receipt Date: 20110526
  Transmission Date: 20111222
  Serious: Yes (Other)
  Sender: FDA-Public Use
  Company Number: US-BAYER-201034788NA

PATIENT
  Sex: Female
  Weight: 81.179 kg

DRUGS (3)
  1. YASMIN [Suspect]
     Dosage: UNK
     Dates: start: 20030101
  2. +#8220;BCP+#8221; (INTERPRETED AS BIRTH CONTROL PILL) [Concomitant]
     Route: 048
  3. MEPERGAN [Concomitant]
     Dosage: UNK UNK, PRN

REACTIONS (4)
  - HYDROCHOLECYSTIS [None]
  - CHOLECYSTECTOMY [None]
  - HAEMORRHAGE [None]
  - CHOLECYSTITIS ACUTE [None]
